FAERS Safety Report 21529521 (Version 3)
Quarter: 2022Q4

REPORT INFORMATION
  Report Type: Other
  Country: BE (occurrence: None)
  Receive Date: 20221031
  Receipt Date: 20221219
  Transmission Date: 20230113
  Serious: No
  Sender: FDA-Public Use
  Company Number: BE-ROCHE-3207490

PATIENT
  Age: 57 Year
  Sex: Female

DRUGS (5)
  1. OCRELIZUMAB [Suspect]
     Active Substance: OCRELIZUMAB
     Indication: Primary progressive multiple sclerosis
     Dosage: ON 13/FEB/2020, SHE RECEIVED SUBSEQUENT DOSE OF OCRELIZUMAB (300 MG IN 250 ML).
     Route: 042
     Dates: start: 20200130, end: 20200130
  2. OCRELIZUMAB [Suspect]
     Active Substance: OCRELIZUMAB
     Dosage: SHE RECEIVED SUBSEQUENT DOSE OF OCRELIZUMAB (600 MG IN 500 ML) ON 02/MAR/2021 (BATCH/LOT NO. H0043B1
     Route: 042
     Dates: start: 20200820, end: 20200820
  3. LEVOTHYROXINE [Concomitant]
     Active Substance: LEVOTHYROXINE
     Route: 048
     Dates: start: 200606
  4. ESTRADIOL [Concomitant]
     Active Substance: ESTRADIOL
     Indication: Prophylaxis
  5. UTROGESTAN [Concomitant]
     Active Substance: PROGESTERONE
     Indication: Prophylaxis

REACTIONS (1)
  - COVID-19 [Recovered/Resolved]

NARRATIVE: CASE EVENT DATE: 20200401
